FAERS Safety Report 4867924-2 (Version None)
Quarter: 2005Q4

REPORT INFORMATION
  Report Type: 
  Country: None (occurrence: None)
  Receive Date: 20051227
  Receipt Date: 20051215
  Transmission Date: 20060501
  Serious: Yes (Hospitalization)
  Sender: FDA-Public Use
  Company Number: 032-59

PATIENT
  Age: 84 Year
  Sex: Female

DRUGS (8)
  1. TEVETEN [Suspect]
     Indication: HYPERTENSION
     Dosage: 600 MG QHS PO
     Route: 048
     Dates: start: 20050616, end: 20050811
  2. PERINDOPRIL [Concomitant]
  3. NIFURTOINOL [Concomitant]
  4. OMEPRAZOLE [Concomitant]
  5. FENOFIBRATE [Concomitant]
  6. BUFLOMEDIL [Concomitant]
  7. ALPRAZOLAM [Concomitant]
  8. FLUTICASONE PROPIONATE SALMETEROL [Concomitant]

REACTIONS (2)
  - HYPERTENSION [None]
  - SYNCOPE [None]
